FAERS Safety Report 4547479-2 (Version None)
Quarter: 2005Q1

REPORT INFORMATION
  Report Type: 
  Country: None (occurrence: None)
  Receive Date: 20050107
  Receipt Date: 20041229
  Transmission Date: 20050727
  Serious: Yes (Life-Threatening)
  Sender: FDA-Public Use
  Company Number: FR-BRISTOL-MYERS SQUIBB COMPANY-12814000

PATIENT
  Age: 19 Year
  Sex: Female

DRUGS (8)
  1. HOLOXAN [Suspect]
     Indication: NON-HODGKIN'S LYMPHOMA
     Dosage: START DATE:  30-NOV-2004
     Route: 042
     Dates: start: 20041202, end: 20041202
  2. MESNA [Suspect]
     Indication: NON-HODGKIN'S LYMPHOMA
     Dosage: START DATE:  30-NOV-2004
     Dates: start: 20041202, end: 20041202
  3. DOXORUBICIN HYDROCHLORIDE [Suspect]
     Indication: NON-HODGKIN'S LYMPHOMA
     Dates: start: 20041201, end: 20041201
  4. ETOPOSIDE [Suspect]
     Indication: NON-HODGKIN'S LYMPHOMA
     Dosage: START DATE:  30-NOV-2004
     Dates: start: 20041202, end: 20041202
  5. METHOTREXATE [Suspect]
     Indication: NON-HODGKIN'S LYMPHOMA
     Dosage: ADMINISTERED ON DAY 3
     Route: 042
     Dates: start: 20041202, end: 20041202
  6. ALLOPURINOL [Suspect]
     Indication: NON-HODGKIN'S LYMPHOMA
     Route: 048
     Dates: start: 20041130
  7. AMPHOTERICIN B [Concomitant]
  8. METHYL-GAG [Concomitant]
     Dosage: ADMINISTERED ON DAY 1.

REACTIONS (2)
  - COMA [None]
  - ENCEPHALOPATHY [None]
